FAERS Safety Report 19443259 (Version 1)
Quarter: 2021Q2

REPORT INFORMATION
  Report Type: Report from Study
  Country: US (occurrence: US)
  Receive Date: 20210621
  Receipt Date: 20210621
  Transmission Date: 20210717
  Serious: Yes (Hospitalization, Other)
  Sender: FDA-Public Use
  Company Number: US-TAKEDA-2021TUS038521

PATIENT
  Age: 44 Year
  Sex: Female

DRUGS (12)
  1. TEDUGLUTIDE [Suspect]
     Active Substance: TEDUGLUTIDE
     Indication: SHORT-BOWEL SYNDROME
     Dosage: 3.5 MILLIGRAM, 7 TED DOSES PER WEEK
     Route: 065
     Dates: start: 20180528, end: 20180719
  2. TEDUGLUTIDE [Suspect]
     Active Substance: TEDUGLUTIDE
     Indication: SHORT-BOWEL SYNDROME
     Dosage: 3.5 MILLIGRAM, 7 TED DOSES PER WEEK
     Route: 065
     Dates: start: 20180528, end: 20180719
  3. TEDUGLUTIDE [Suspect]
     Active Substance: TEDUGLUTIDE
     Indication: SHORT-BOWEL SYNDROME
     Dosage: 3.5 MILLIGRAM, 7 TED DOSES PER WEEK
     Route: 065
     Dates: start: 20180528, end: 20180719
  4. SODIUM BICARBONATE. [Concomitant]
     Active Substance: SODIUM BICARBONATE
     Indication: ACUTE KIDNEY INJURY
     Dosage: 650 MILLIGRAM, BID
     Route: 048
     Dates: start: 20200913, end: 20200915
  5. POTASSIUM CHLORIDE. [Concomitant]
     Active Substance: POTASSIUM CHLORIDE
     Indication: ACUTE KIDNEY INJURY
     Dosage: 20 MILLIEQUIVALENT, Q1HR
     Route: 042
     Dates: start: 20200913, end: 20200913
  6. TEDUGLUTIDE [Suspect]
     Active Substance: TEDUGLUTIDE
     Dosage: 3.5 MILLIGRAM, 3 TED DOSES PER WEEK
     Route: 065
     Dates: start: 20180719, end: 2019
  7. TEDUGLUTIDE [Suspect]
     Active Substance: TEDUGLUTIDE
     Dosage: 3.5 MILLIGRAM, 3 TED DOSES PER WEEK
     Route: 065
     Dates: start: 20180719, end: 2019
  8. PARICALCITOL. [Concomitant]
     Active Substance: PARICALCITOL
     Indication: ACUTE KIDNEY INJURY
     Dosage: 4 MICROGRAM, QD
     Route: 042
     Dates: start: 20200915, end: 20200916
  9. TEDUGLUTIDE [Suspect]
     Active Substance: TEDUGLUTIDE
     Indication: SHORT-BOWEL SYNDROME
     Dosage: 3.5 MILLIGRAM, 7 TED DOSES PER WEEK
     Route: 065
     Dates: start: 20180528, end: 20180719
  10. TEDUGLUTIDE [Suspect]
     Active Substance: TEDUGLUTIDE
     Dosage: 3.5 MILLIGRAM, 3 TED DOSES PER WEEK
     Route: 065
     Dates: start: 20180719, end: 2019
  11. TEDUGLUTIDE [Suspect]
     Active Substance: TEDUGLUTIDE
     Dosage: 3.5 MILLIGRAM, 3 TED DOSES PER WEEK
     Route: 065
     Dates: start: 20180719, end: 2019
  12. SODIUM CHLORIDE. [Concomitant]
     Active Substance: SODIUM CHLORIDE
     Indication: ACUTE KIDNEY INJURY
     Dosage: 1000 MILLILITER, QD
     Route: 042
     Dates: start: 20200911, end: 20200916

REACTIONS (1)
  - Crohn^s disease [Recovered/Resolved]

NARRATIVE: CASE EVENT DATE: 20210504
